FAERS Safety Report 25661115 (Version 1)
Quarter: 2025Q3

REPORT INFORMATION
  Report Type: Spontaneous
  Country: RU (occurrence: RU)
  Receive Date: 20250808
  Receipt Date: 20250808
  Transmission Date: 20251020
  Serious: Yes (Other)
  Sender: VIIV
  Company Number: RU-VIIV HEALTHCARE ULC-RU2025EME100543

PATIENT

DRUGS (1)
  1. RUKOBIA [Suspect]
     Active Substance: FOSTEMSAVIR TROMETHAMINE
     Indication: HIV infection

REACTIONS (2)
  - Pneumonia [Unknown]
  - Nausea [Unknown]
